FAERS Safety Report 6092900-4 (Version None)
Quarter: 2009Q1

REPORT INFORMATION
  Report Type: 
  Country: None (occurrence: None)
  Receive Date: 20090225
  Receipt Date: 20090212
  Transmission Date: 20090719
  Serious: Yes (Death, Other)
  Sender: FDA-Public Use
  Company Number: ID-GENENTECH-277233

PATIENT
  Age: 59 Year
  Sex: Male

DRUGS (5)
  1. ACTIVASE [Suspect]
     Indication: ISCHAEMIC STROKE
     Dosage: 10 MG, UNK
     Route: 040
     Dates: start: 20090207, end: 20090207
  2. ACTIVASE [Suspect]
     Dosage: UNK
     Route: 041
     Dates: start: 20090207, end: 20090207
  3. LOVENOX [Concomitant]
     Indication: ANGINA UNSTABLE
     Dosage: 0.4 MG, X1
     Route: 058
     Dates: start: 20090207, end: 20090207
  4. PLAVIX [Concomitant]
     Indication: THROMBOLYSIS
     Dosage: UNK
     Route: 048
     Dates: start: 20090207, end: 20090207
  5. NICHOLIN (JAPAN) [Concomitant]
     Indication: MENTAL DISORDER
     Dosage: 250 MG, X3
     Route: 042
     Dates: start: 20090207, end: 20090207

REACTIONS (3)
  - ANAPHYLACTIC REACTION [None]
  - APNOEA [None]
  - BRADYCARDIA [None]
